FAERS Safety Report 21404169 (Version 2)
Quarter: 2022Q4

REPORT INFORMATION
  Report Type: Report from Study
  Country: FR (occurrence: FR)
  Receive Date: 20221003
  Receipt Date: 20221004
  Transmission Date: 20230113
  Serious: Yes (Hospitalization, Other)
  Sender: FDA-Public Use
  Company Number: FR-002147023-NVSC2022FR211542

PATIENT
  Age: 67 Year
  Sex: Female
  Weight: 82 kg

DRUGS (5)
  1. IBRANCE [Suspect]
     Active Substance: PALBOCICLIB
     Indication: Hormone receptor positive HER2 negative breast cancer
     Dosage: 125 MG, QD
     Route: 048
     Dates: start: 20210111, end: 20211112
  2. LETROZOLE [Suspect]
     Active Substance: LETROZOLE
     Indication: Hormone receptor positive HER2 negative breast cancer
     Dosage: 25 MG, QD
     Route: 048
     Dates: start: 20210111
  3. LETROZOLE [Suspect]
     Active Substance: LETROZOLE
     Dosage: 25 MG, QD
     Route: 048
     Dates: start: 20211118
  4. DOLIPRANE [Concomitant]
     Active Substance: ACETAMINOPHEN
     Indication: Pain
     Dosage: 500 MG
     Route: 048
     Dates: start: 20210111
  5. INNOHEP [Concomitant]
     Active Substance: TINZAPARIN SODIUM
     Indication: Product used for unknown indication
     Dosage: 14000 IU/L
     Route: 065
     Dates: start: 20211119

REACTIONS (30)
  - Pulmonary embolism [Recovered/Resolved]
  - Hypoxia [Unknown]
  - General physical health deterioration [Unknown]
  - Lung opacity [Unknown]
  - Dyspnoea [Unknown]
  - Pneumonia [Unknown]
  - Pneumonia bacterial [Recovered/Resolved]
  - Pancytopenia [Unknown]
  - Neutropenia [Unknown]
  - Thrombocytopenia [Unknown]
  - Hypoalbuminaemia [Unknown]
  - Diarrhoea [Unknown]
  - Oral candidiasis [Unknown]
  - Asthenia [Unknown]
  - Dysgeusia [Not Recovered/Not Resolved]
  - Anisocytosis [Unknown]
  - Inflammation [Unknown]
  - Hyponatraemia [Unknown]
  - Dysphagia [Unknown]
  - Lymphopenia [Unknown]
  - Weight decreased [Unknown]
  - Feeding disorder [Recovering/Resolving]
  - Poikilocytosis [Unknown]
  - Decreased appetite [Unknown]
  - Paraesthesia [Unknown]
  - Normocytic anaemia [Unknown]
  - Oral fungal infection [Recovering/Resolving]
  - Bundle branch block right [Unknown]
  - Neoplasm progression [Unknown]
  - Radiation injury [Unknown]

NARRATIVE: CASE EVENT DATE: 20210101
